FAERS Safety Report 21049091 (Version 2)
Quarter: 2022Q3

REPORT INFORMATION
  Report Type: Spontaneous
  Country: FR (occurrence: FR)
  Receive Date: 20220706
  Receipt Date: 20220808
  Transmission Date: 20221026
  Serious: Yes (Other)
  Sender: FDA-Public Use
  Company Number: None

PATIENT
  Age: 85 Year
  Sex: Male

DRUGS (3)
  1. RISPERIDONE [Suspect]
     Active Substance: RISPERIDONE
     Indication: Behaviour disorder
     Dosage: 1 MILLIGRAM, QD
     Route: 048
     Dates: start: 20220512, end: 20220525
  2. PERINDOPRIL [Suspect]
     Active Substance: PERINDOPRIL
     Indication: Product used for unknown indication
     Dosage: 4 MILLIGRAM, QD
     Route: 048
     Dates: start: 20220501, end: 20220519
  3. ATORVASTATIN CALCIUM [Suspect]
     Active Substance: ATORVASTATIN CALCIUM
     Indication: Cardiovascular event prophylaxis
     Dosage: 40 MG/DAY THEN 80 MG/DAY
     Route: 048
     Dates: start: 20220429, end: 20220518

REACTIONS (1)
  - Cholestasis [Recovered/Resolved]

NARRATIVE: CASE EVENT DATE: 20220518
